FAERS Safety Report 8896439 (Version 1)
Quarter: 2012Q4

REPORT INFORMATION
  Report Type: Spontaneous
  Country: JP (occurrence: None)
  Receive Date: 20121102
  Receipt Date: 20121102
  Transmission Date: 20130627
  Serious: Yes (Hospitalization)
  Sender: FDA-Public Use
  Company Number: ABR_00666_2012

PATIENT
  Age: 8 Year
  Sex: Male

DRUGS (3)
  1. ERYTHROMYCIN [Suspect]
     Indication: PRODUCT USED FOR UNKNOWN INDICATION
     Route: 048
  2. ERYTHROMYCIN [Suspect]
     Indication: PRODUCT USED FOR UNKNOWN INDICATION
     Route: 048
  3. PEMIROLAST POTASSIUM [Concomitant]

REACTIONS (3)
  - Liver disorder [None]
  - Drug hypersensitivity [None]
  - Abdominal pain [None]
